FAERS Safety Report 9685424 (Version 3)
Quarter: 2014Q1

REPORT INFORMATION
  Report Type: Spontaneous
  Country: US (occurrence: US)
  Receive Date: 20131113
  Receipt Date: 20140102
  Transmission Date: 20141002
  Serious: Yes (Death, Hospitalization, Other)
  Sender: FDA-Public Use
  Company Number: US-BAYER-2013-135573

PATIENT
  Age: 58 Year
  Sex: Male

DRUGS (1)
  1. STIVARGA [Suspect]
     Indication: COLON CANCER
     Dosage: UNK
     Dates: start: 20130520, end: 20131021

REACTIONS (5)
  - Lung infiltration [None]
  - Pleural effusion [None]
  - Death [Fatal]
  - Hospitalisation [None]
  - Cough [None]
